FAERS Safety Report 5066805-1 (Version None)
Quarter: 2006Q3

REPORT INFORMATION
  Report Type: 
  Country: None (occurrence: None)
  Receive Date: 20060711
  Receipt Date: 20060327
  Transmission Date: 20061208
  Serious: Yes (Other)
  Sender: FDA-Public Use
  Company Number: 2006043662

PATIENT
  Age: 87 Year
  Sex: Female

DRUGS (7)
  1. ACCUPRIL [Suspect]
     Indication: HYPERTENSION
     Dosage: 40 MG (10 MG, BID)
     Dates: end: 20060315
  2. NORVASC [Concomitant]
  3. TOPROL-XL [Concomitant]
  4. LASIX [Concomitant]
  5. ZOCOR [Concomitant]
  6. ISOSORBIDE MONONITRATE [Concomitant]
  7. VITAMINS (VITAMINS) [Concomitant]

REACTIONS (4)
  - DYSPNOEA [None]
  - NASOPHARYNGITIS [None]
  - RHINORRHOEA [None]
  - TONGUE OEDEMA [None]
